FAERS Safety Report 8007952-1 (Version None)
Quarter: 2011Q4

REPORT INFORMATION
  Report Type: 
  Country: None (occurrence: None)
  Receive Date: 20111227
  Receipt Date: 20111213
  Transmission Date: 20120403
  Serious: Yes (Hospitalization)
  Sender: FDA-Public Use
  Company Number: US-ELI_LILLY_AND_COMPANY-US201102000211

PATIENT
  Sex: Female

DRUGS (8)
  1. SOTALOL HCL [Concomitant]
     Dosage: UNK, BID
  2. SIMAVASTATIN [Concomitant]
  3. FORTEO [Suspect]
     Dosage: 20 UG, DAILY (1/D)
  4. FORTEO [Suspect]
     Indication: OSTEOPOROSIS
     Dosage: 20 UG, DAILY (1/D)
     Dates: start: 20101202
  5. OMEPRAZOLE [Concomitant]
     Dosage: UNK, BID
  6. FORTEO [Suspect]
     Dosage: 20 UG, QD
     Dates: start: 20101202
  7. ATROPINE [Concomitant]
  8. PREDNISOLONE [Concomitant]

REACTIONS (9)
  - COLITIS [None]
  - FALL [None]
  - ULNAR NERVE INJURY [None]
  - NERVE COMPRESSION [None]
  - TOOTH DISORDER [None]
  - MUSCULAR WEAKNESS [None]
  - TOOTH FRACTURE [None]
  - SENSITIVITY OF TEETH [None]
  - HYPOAESTHESIA [None]
